FAERS Safety Report 4550702-1 (Version None)
Quarter: 2004Q4

REPORT INFORMATION
  Report Type: 
  Country: None (occurrence: None)
  Receive Date: 20041217
  Receipt Date: 20041021
  Transmission Date: 20050328
  Serious: No
  Sender: FDA-Public Use
  Company Number: 2004-BP-10649BP

PATIENT
  Age: 62 Year
  Sex: Female

DRUGS (9)
  1. SPIRIVA [Suspect]
     Indication: ASTHMA
     Dosage: 18 MCG (18 MCG), IH
     Route: 055
     Dates: start: 20041012, end: 20041014
  2. ALBUTEROL [Concomitant]
  3. HALLS COUGH DROPS [Concomitant]
  4. GLUCOPHAGE [Concomitant]
  5. STARLIX [Concomitant]
  6. LISINOPRIL [Concomitant]
  7. ATENOLOL [Concomitant]
  8. MICRO-K 10 [Concomitant]
  9. BIAXIN [Concomitant]

REACTIONS (1)
  - DRUG INEFFECTIVE [None]
